FAERS Safety Report 9769586 (Version 1)
Quarter: 2013Q4

REPORT INFORMATION
  Report Type: Spontaneous
  Country: US (occurrence: US)
  Receive Date: 20131218
  Receipt Date: 20131218
  Transmission Date: 20140711
  Serious: Yes (Other)
  Sender: FDA-Public Use
  Company Number: US-JNJFOC-20131206312

PATIENT
  Age: 48 Year
  Sex: Male

DRUGS (7)
  1. HALDOL [Suspect]
     Indication: AGITATION
     Route: 030
     Dates: start: 201311
  2. INVEGA [Suspect]
     Indication: SCHIZOPHRENIA
     Route: 048
     Dates: start: 20131128, end: 201312
  3. LISINOPRIL [Concomitant]
     Indication: AGITATION
     Route: 065
     Dates: start: 201311
  4. LISINOPRIL [Concomitant]
     Indication: PSYCHOTIC DISORDER
     Route: 065
     Dates: start: 201311
  5. ATIVAN [Concomitant]
     Indication: AGITATION
     Route: 065
     Dates: start: 201311
  6. ATIVAN [Concomitant]
     Indication: PSYCHOTIC DISORDER
     Route: 065
     Dates: start: 201311
  7. LAMICTAL [Concomitant]
     Route: 065
     Dates: start: 20131128

REACTIONS (1)
  - Neuroleptic malignant syndrome [Not Recovered/Not Resolved]
